FAERS Safety Report 6729684-X (Version None)
Quarter: 2010Q2

REPORT INFORMATION
  Report Type: 
  Country: None (occurrence: None)
  Receive Date: 20100518
  Receipt Date: 20100511
  Transmission Date: 20101027
  Serious: Yes (Death, Hospitalization)
  Sender: FDA-Public Use
  Company Number: TW-JNJFOC-20100406275

PATIENT
  Age: 24 Year
  Sex: Male

DRUGS (4)
  1. LEVOFLOXACIN [Suspect]
     Indication: PNEUMONIA
     Route: 065
  2. PENICILLIN G POTASSIUM [Suspect]
     Indication: PNEUMONIA
     Dosage: 3 MU
     Route: 051
  3. OSELTAMIVIR PHOSPHATE [Suspect]
     Indication: PNEUMONIA
     Route: 048
  4. CEFUROXIME [Suspect]
     Indication: SEPSIS
     Route: 051

REACTIONS (8)
  - ALANINE AMINOTRANSFERASE INCREASED [None]
  - ASPARTATE AMINOTRANSFERASE INCREASED [None]
  - BLOOD BILIRUBIN INCREASED [None]
  - DISSEMINATED INTRAVASCULAR COAGULATION [None]
  - HEPATIC FUNCTION ABNORMAL [None]
  - MULTI-ORGAN DISORDER [None]
  - PNEUMONIA [None]
  - SEPTIC SHOCK [None]
